FAERS Safety Report 24678975 (Version 1)
Quarter: 2024Q4

REPORT INFORMATION
  Report Type: Other
  Country: US (occurrence: US)
  Receive Date: 20241129
  Receipt Date: 20241129
  Transmission Date: 20250115
  Serious: Yes (Death, Life-Threatening, Hospitalization)
  Sender: ALVOGEN
  Company Number: US-ALVOGEN-2024095803

PATIENT
  Age: 79 Year
  Sex: Female

DRUGS (1)
  1. CLINDAMYCIN [Suspect]
     Active Substance: CLINDAMYCIN
     Indication: Decubitus ulcer

REACTIONS (10)
  - Multiple organ dysfunction syndrome [Fatal]
  - Melaena [Fatal]
  - Vaginal haemorrhage [Fatal]
  - Neurological decompensation [Fatal]
  - Mucosal inflammation [Fatal]
  - Chronic kidney disease [Fatal]
  - Condition aggravated [Fatal]
  - Hypotension [Fatal]
  - Toxic epidermal necrolysis [Fatal]
  - Off label use [Unknown]
